FAERS Safety Report 24619532 (Version 2)
Quarter: 2025Q3

REPORT INFORMATION
  Report Type: Spontaneous
  Country: EU (occurrence: EU)
  Receive Date: 20241114
  Receipt Date: 20250803
  Transmission Date: 20251020
  Serious: Yes (Other)
  Sender: ALEXION PHARMACEUTICALS
  Company Number: None

PATIENT
  Age: 68 Year
  Sex: Male

DRUGS (4)
  1. CRESTOR [Suspect]
     Active Substance: ROSUVASTATIN CALCIUM
     Indication: Product used for unknown indication
     Route: 065
  2. PREGABALIN [Suspect]
     Active Substance: PREGABALIN
     Dates: start: 202401
  3. METFORMIN [Concomitant]
     Active Substance: METFORMIN HYDROCHLORIDE
     Dosage: 1000 MILLIGRAM, 2/DAY
  4. Alfuzosin stada [Concomitant]
     Dosage: 10 MILLIGRAM, 1/DAY

REACTIONS (2)
  - Blood creatine phosphokinase increased [Not Recovered/Not Resolved]
  - Hyperlipasaemia [Not Recovered/Not Resolved]

NARRATIVE: CASE EVENT DATE: 20241016
